FAERS Safety Report 24546720 (Version 2)
Quarter: 2025Q2

REPORT INFORMATION
  Report Type: Spontaneous
  Country: US (occurrence: US)
  Receive Date: 20241024
  Receipt Date: 20250429
  Transmission Date: 20250717
  Serious: Yes (Other)
  Sender: APELLIS PHARMACEUTICALS
  Company Number: US-APELLIS PHARMACEUTICALS-APL-2024-004232

PATIENT

DRUGS (31)
  1. SYFOVRE [Suspect]
     Active Substance: PEGCETACOPLAN
     Indication: Dry age-related macular degeneration
     Route: 031
     Dates: start: 20230503, end: 20230503
  2. SYFOVRE [Suspect]
     Active Substance: PEGCETACOPLAN
     Indication: Dry age-related macular degeneration
     Route: 031
     Dates: start: 20230530, end: 20230530
  3. SYFOVRE [Suspect]
     Active Substance: PEGCETACOPLAN
     Route: 031
     Dates: start: 20230627, end: 20230627
  4. SYFOVRE [Suspect]
     Active Substance: PEGCETACOPLAN
     Route: 031
     Dates: start: 20230725, end: 20230725
  5. SYFOVRE [Suspect]
     Active Substance: PEGCETACOPLAN
     Route: 031
     Dates: start: 20230822, end: 20230822
  6. SYFOVRE [Suspect]
     Active Substance: PEGCETACOPLAN
     Route: 031
     Dates: start: 20230927, end: 20230927
  7. SYFOVRE [Suspect]
     Active Substance: PEGCETACOPLAN
     Route: 031
     Dates: start: 20231031, end: 20231031
  8. SYFOVRE [Suspect]
     Active Substance: PEGCETACOPLAN
     Route: 031
     Dates: start: 20231031, end: 20231031
  9. SYFOVRE [Suspect]
     Active Substance: PEGCETACOPLAN
     Route: 031
     Dates: start: 20231206, end: 20231206
  10. SYFOVRE [Suspect]
     Active Substance: PEGCETACOPLAN
     Route: 031
     Dates: start: 20231206, end: 20231206
  11. SYFOVRE [Suspect]
     Active Substance: PEGCETACOPLAN
     Route: 031
     Dates: start: 20240110, end: 20240110
  12. SYFOVRE [Suspect]
     Active Substance: PEGCETACOPLAN
     Route: 031
     Dates: start: 20240110, end: 20240110
  13. SYFOVRE [Suspect]
     Active Substance: PEGCETACOPLAN
     Route: 031
     Dates: start: 20240207, end: 20240207
  14. SYFOVRE [Suspect]
     Active Substance: PEGCETACOPLAN
     Route: 031
     Dates: start: 20240306, end: 20240306
  15. SYFOVRE [Suspect]
     Active Substance: PEGCETACOPLAN
     Route: 031
     Dates: start: 20240306, end: 20240306
  16. PREDNISONE [Concomitant]
     Active Substance: PREDNISONE
     Indication: Illness
     Dosage: 20MG DAILY 10 DAY COURSE
     Dates: start: 20231107
  17. PREDNISONE [Concomitant]
     Active Substance: PREDNISONE
     Dosage: 60MG DECREASED BY 10MG EVERY 7 DAYS UNTIL OFF, TAKE IN THE MORNING WITH MEALS
     Dates: start: 20240204
  18. OLMESARTAN [Concomitant]
     Active Substance: OLMESARTAN
     Indication: Product used for unknown indication
  19. ATORVASTATIN [Concomitant]
     Active Substance: ATORVASTATIN
     Indication: Product used for unknown indication
  20. OMEPRAZOLE [Concomitant]
     Active Substance: OMEPRAZOLE
     Indication: Product used for unknown indication
  21. MELOXICAM [Concomitant]
     Active Substance: MELOXICAM
     Indication: Product used for unknown indication
  22. ACYCLOVIR [Concomitant]
     Active Substance: ACYCLOVIR
     Indication: Product used for unknown indication
  23. NAPROXEN SODIUM [Concomitant]
     Active Substance: NAPROXEN SODIUM
     Indication: Product used for unknown indication
  24. METOPROLOL [Concomitant]
     Active Substance: METOPROLOL
     Indication: Product used for unknown indication
  25. ZOLPIDEM [Concomitant]
     Active Substance: ZOLPIDEM TARTRATE
     Indication: Product used for unknown indication
  26. HYDROCHLOROTHIAZIDE [Concomitant]
     Active Substance: HYDROCHLOROTHIAZIDE
     Indication: Product used for unknown indication
  27. HYPROMELLOSE;PROPYLENE GLYCOL [Concomitant]
     Indication: Product used for unknown indication
  28. PROPARACAINE [Concomitant]
     Active Substance: PROPARACAINE
     Indication: Product used for unknown indication
  29. POVIDONE-IODINE [Concomitant]
     Active Substance: POVIDONE-IODINE
     Indication: Product used for unknown indication
  30. LIDOCAINE [Concomitant]
     Active Substance: LIDOCAINE
     Indication: Product used for unknown indication
  31. AVASTIN [Concomitant]
     Active Substance: BEVACIZUMAB
     Indication: Product used for unknown indication
     Dates: start: 20240327

REACTIONS (11)
  - Optic ischaemic neuropathy [Recovering/Resolving]
  - Eyelid ptosis [Not Recovered/Not Resolved]
  - Optic ischaemic neuropathy [Recovering/Resolving]
  - Papilloedema [Unknown]
  - Idiopathic intracranial hypertension [Unknown]
  - Illness [Recovered/Resolved]
  - Cough [Recovering/Resolving]
  - Immunodeficiency [Unknown]
  - Abnormal loss of weight [Unknown]
  - Pyrexia [Unknown]
  - Chills [Unknown]

NARRATIVE: CASE EVENT DATE: 20240101
